FAERS Safety Report 9640429 (Version 1)
Quarter: 2013Q4

REPORT INFORMATION
  Report Type: Spontaneous
  Country: US (occurrence: None)
  Receive Date: 20131022
  Receipt Date: 20131022
  Transmission Date: 20140711
  Serious: Yes (Life-Threatening)
  Sender: FDA-Public Use
  Company Number: None

PATIENT
  Age: 69 Year
  Sex: Male
  Weight: 95.26 kg

DRUGS (8)
  1. ENALAPRIL MALEATE [Suspect]
     Indication: HYPERTENSION
     Route: 048
     Dates: start: 201108, end: 201308
  2. METOPROLOL TARTRATE [Concomitant]
  3. FENOFIBRATE [Concomitant]
  4. COPMYL [Concomitant]
  5. PRILOSEC [Concomitant]
  6. MULTIVITAMIN [Concomitant]
  7. VITAMIN C [Concomitant]
  8. VITAMIN D3 [Concomitant]

REACTIONS (6)
  - Diarrhoea [None]
  - Rash [None]
  - Chills [None]
  - Urine output decreased [None]
  - Dyspnoea [None]
  - Gait disturbance [None]
